FAERS Safety Report 16839294 (Version 1)
Quarter: 2019Q3

REPORT INFORMATION
  Report Type: Spontaneous
  Country: US (occurrence: US)
  Receive Date: 20190923
  Receipt Date: 20190923
  Transmission Date: 20191005
  Serious: No
  Sender: FDA-Public Use
  Company Number: US-PFIZER INC-2019405558

PATIENT
  Sex: Female

DRUGS (3)
  1. ZOLOFT [Suspect]
     Active Substance: SERTRALINE HYDROCHLORIDE
     Dosage: UNK
  2. TRAMADOL. [Interacting]
     Active Substance: TRAMADOL
     Dosage: UNK
  3. OXYCODONE [Interacting]
     Active Substance: OXYCODONE
     Dosage: UNK

REACTIONS (3)
  - Aggression [Unknown]
  - Irritability [Unknown]
  - Drug interaction [Unknown]
